FAERS Safety Report 13196526 (Version 1)
Quarter: 2017Q1

REPORT INFORMATION
  Report Type: Spontaneous
  Country: IT (occurrence: IT)
  Receive Date: 20170208
  Receipt Date: 20170208
  Transmission Date: 20170428
  Serious: Yes (Other)
  Sender: FDA-Public Use
  Company Number: IT-PFIZER INC-2017053213

PATIENT
  Age: 73 Year
  Sex: Female

DRUGS (2)
  1. ADRIBLASTINA [Suspect]
     Active Substance: DOXORUBICIN HYDROCHLORIDE
     Indication: BREAST CANCER
     Dosage: 100 MG, CYCLIC
     Route: 042
     Dates: start: 20131105, end: 20140107
  2. CYCLOPHOSPHAMIDE. [Suspect]
     Active Substance: CYCLOPHOSPHAMIDE
     Indication: BREAST CANCER
     Dosage: 1000 DF, CYCLIC
     Route: 042
     Dates: start: 20131103, end: 20140107

REACTIONS (4)
  - Weight decreased [Recovering/Resolving]
  - Asthenia [Recovering/Resolving]
  - Constipation [Recovering/Resolving]
  - Alopecia [Recovering/Resolving]

NARRATIVE: CASE EVENT DATE: 20161217
